FAERS Safety Report 4579223-7 (Version None)
Quarter: 2005Q1

REPORT INFORMATION
  Report Type: 
  Country: None (occurrence: None)
  Receive Date: 20050209
  Receipt Date: 20050209
  Transmission Date: 20050727
  Serious: Yes (Other)
  Sender: FDA-Public Use
  Company Number: None

PATIENT
  Age: 28 Year
  Sex: Male
  Weight: 83 kg

DRUGS (2)
  1. CLOZAPINE [Suspect]
     Dosage: 400 MG HS
     Dates: start: 20041112
  2. BENZTROPINE 2 MG [Suspect]
     Dosage: 2 MG TID
     Dates: start: 20041112

REACTIONS (3)
  - CONSTIPATION [None]
  - ILEUS PARALYTIC [None]
  - VOMITING [None]
